FAERS Safety Report 6456536-5 (Version None)
Quarter: 2009Q4

REPORT INFORMATION
  Report Type: 
  Country: None (occurrence: None)
  Receive Date: 20091125
  Receipt Date: 20091112
  Transmission Date: 20100525
  Serious: Yes (Hospitalization)
  Sender: FDA-Public Use
  Company Number: TN-SANOFI-AVENTIS-2009SA001884

PATIENT
  Age: 60 Year
  Sex: Female

DRUGS (6)
  1. ZOLPIDEM [Suspect]
     Indication: DRUG USE FOR UNKNOWN INDICATION
     Route: 065
     Dates: end: 20090801
  2. PLAVIX [Suspect]
     Route: 048
     Dates: start: 20090101, end: 20091101
  3. GARDENAL [Suspect]
     Indication: DRUG USE FOR UNKNOWN INDICATION
     Route: 048
     Dates: end: 20091101
  4. DEPAKENE [Suspect]
     Indication: DRUG USE FOR UNKNOWN INDICATION
     Route: 048
  5. TAHOR [Concomitant]
     Indication: DYSLIPIDAEMIA
     Route: 048
     Dates: end: 20091101
  6. ASPIRIN [Concomitant]
     Route: 048
     Dates: end: 20091101

REACTIONS (2)
  - TOXIC EPIDERMAL NECROLYSIS [None]
  - URTICARIA [None]
